FAERS Safety Report 25890154 (Version 1)
Quarter: 2025Q4

REPORT INFORMATION
  Report Type: Spontaneous
  Country: CR (occurrence: CR)
  Receive Date: 20251007
  Receipt Date: 20251007
  Transmission Date: 20260118
  Serious: Yes (Hospitalization)
  Sender: ANI
  Company Number: CR-ANIPHARMA-030839

PATIENT
  Sex: Female

DRUGS (3)
  1. FLUVOXAMINE MALEATE [Suspect]
     Active Substance: FLUVOXAMINE MALEATE
     Indication: Product used for unknown indication
  2. PRIPAX [Concomitant]
     Indication: Product used for unknown indication
     Route: 048
  3. PRIPAX [Concomitant]
     Indication: Product used for unknown indication
     Route: 048

REACTIONS (2)
  - Oesophageal spasm [Recovered/Resolved]
  - Hiccups [Recovered/Resolved]
